FAERS Safety Report 13129645 (Version 1)
Quarter: 2017Q1

REPORT INFORMATION
  Report Type: Spontaneous
  Country: US (occurrence: US)
  Receive Date: 20170118
  Receipt Date: 20170118
  Transmission Date: 20170428
  Serious: Yes (Disabling, Other)
  Sender: FDA-Public Use
  Company Number: None

PATIENT
  Age: 58 Year
  Sex: Female
  Weight: 58.5 kg

DRUGS (4)
  1. ALENDRONATE SODIUM 70MG [Suspect]
     Active Substance: ALENDRONATE SODIUM
     Indication: OSTEOPOROSIS
     Dosage: ?          QUANTITY:1 TABLET(S);OTHER FREQUENCY:WEEKLY;?
     Route: 048
     Dates: start: 20170116, end: 20170116
  2. CALTRATE D3 PLUS MINERALS [Concomitant]
  3. VITAMIN D3 [Concomitant]
     Active Substance: CHOLECALCIFEROL
  4. CHOLESTOFF PLUS BABY ASPIRIN [Concomitant]

REACTIONS (5)
  - Dyspepsia [None]
  - Musculoskeletal pain [None]
  - Chest pain [None]
  - Sleep disorder due to general medical condition, insomnia type [None]
  - Musculoskeletal chest pain [None]

NARRATIVE: CASE EVENT DATE: 20170116
